FAERS Safety Report 10778755 (Version 1)
Quarter: 2015Q1

REPORT INFORMATION
  Report Type: Spontaneous
  Country: US (occurrence: US)
  Receive Date: 20150210
  Receipt Date: 20150210
  Transmission Date: 20150721
  Serious: No
  Sender: FDA-Public Use
  Company Number: US-GLAXOSMITHKLINE-A1081086A

PATIENT

DRUGS (8)
  1. FOLIC ACID. [Concomitant]
     Active Substance: FOLIC ACID
  2. UNKNOWN MEDICATION [Concomitant]
     Active Substance: UNSPECIFIED INGREDIENT
  3. DILTIAZEM [Concomitant]
     Active Substance: DILTIAZEM
  4. POTASSIUM [Concomitant]
     Active Substance: POTASSIUM
  5. HYDROCODONE [Concomitant]
     Active Substance: HYDROCODONE
  6. PLAQUENIL [Concomitant]
     Active Substance: HYDROXYCHLOROQUINE SULFATE
  7. BENLYSTA [Suspect]
     Active Substance: BELIMUMAB
     Indication: SYSTEMIC LUPUS ERYTHEMATOSUS
     Route: 042
     Dates: start: 201405
  8. TOPAMAX [Concomitant]
     Active Substance: TOPIRAMATE

REACTIONS (6)
  - Respiratory tract congestion [Unknown]
  - Sinusitis [Unknown]
  - Sleep disorder [Unknown]
  - Nasal disorder [Unknown]
  - Nasal congestion [Recovered/Resolved with Sequelae]
  - Chest discomfort [Unknown]

NARRATIVE: CASE EVENT DATE: 201406
